FAERS Safety Report 4410583-3 (Version None)
Quarter: 2004Q3

REPORT INFORMATION
  Report Type: 
  Country: None (occurrence: None)
  Receive Date: 20040726
  Receipt Date: 20040715
  Transmission Date: 20050211
  Serious: Yes (Death)
  Sender: FDA-Public Use
  Company Number: US-JNJFOC-20040704493

PATIENT
  Age: 76 Year
  Sex: Female

DRUGS (1)
  1. DURAGESIC [Suspect]
     Indication: CANCER PAIN
     Dosage: 150 UG/HR, 1 IN 72 HOUR TRANSDERMAL
     Route: 062
     Dates: start: 20040204, end: 20040506

REACTIONS (1)
  - DEATH [None]
